FAERS Safety Report 6386807-2 (Version None)
Quarter: 2009Q4

REPORT INFORMATION
  Report Type: 
  Country: None (occurrence: None)
  Receive Date: 20091002
  Receipt Date: 20090929
  Transmission Date: 20100525
  Serious: Yes (Other)
  Sender: FDA-Public Use
  Company Number: B0592852A

PATIENT
  Sex: Female
  Weight: 24.6 kg

DRUGS (4)
  1. FOSAMPRENAVIR [Suspect]
     Indication: HIV INFECTION
     Dosage: 711MG TWICE PER DAY
     Route: 048
     Dates: start: 20050524, end: 20090714
  2. ZIDOVUDINE [Suspect]
     Indication: HIV INFECTION
     Route: 048
     Dates: start: 20071129
  3. STAVUDINE [Concomitant]
     Indication: HIV INFECTION
     Dates: start: 20050524, end: 20080820
  4. LAMIVUDINE [Concomitant]
     Indication: HIV INFECTION
     Route: 048
     Dates: start: 20050524

REACTIONS (1)
  - NEUTROPENIA [None]
